FAERS Safety Report 4496144-9 (Version None)
Quarter: 2004Q4

REPORT INFORMATION
  Report Type: 
  Country: None (occurrence: None)
  Receive Date: 20041108
  Receipt Date: 20041108
  Transmission Date: 20050328
  Serious: Yes (Other)
  Sender: FDA-Public Use
  Company Number: None

PATIENT
  Age: 28 Year
  Sex: Male
  Weight: 51.2565 kg

DRUGS (3)
  1. GENTAMICIN [Suspect]
     Indication: CONDITION AGGRAVATED
     Dosage: 150 MG BID IV
     Route: 042
     Dates: start: 20041026, end: 20041028
  2. GENTAMICIN [Suspect]
     Indication: CYSTIC FIBROSIS
     Dosage: 150 MG BID IV
     Route: 042
     Dates: start: 20041026, end: 20041028
  3. CEFTAZIDIME [Concomitant]

REACTIONS (4)
  - DIZZINESS [None]
  - FEELING ABNORMAL [None]
  - SENSATION OF PRESSURE IN EAR [None]
  - TINNITUS [None]
